FAERS Safety Report 21915518 (Version 1)
Quarter: 2023Q1

REPORT INFORMATION
  Report Type: Spontaneous
  Country: US (occurrence: None)
  Receive Date: 20230125
  Receipt Date: 20230125
  Transmission Date: 20230418
  Serious: No
  Sender: FDA-Public Use
  Company Number: None

PATIENT
  Sex: Male

DRUGS (1)
  1. TALTZ [Suspect]
     Active Substance: IXEKIZUMAB
     Indication: Psoriasis
     Dosage: 160MG SUBQ?? INJECT 2 PENS UNDER THE SKIN ON DAY 1 THEN 1 PEN EVERY 4 WEEKS THEREAFTER.??
     Route: 058
     Dates: start: 202301

REACTIONS (3)
  - Syringe issue [None]
  - Incorrect dose administered by device [None]
  - Device defective [None]
